FAERS Safety Report 9469973 (Version 2)
Quarter: 2013Q4

REPORT INFORMATION
  Report Type: Spontaneous
  Country: AR (occurrence: AR)
  Receive Date: 20130822
  Receipt Date: 20131115
  Transmission Date: 20140711
  Serious: Yes (Other)
  Sender: FDA-Public Use
  Company Number: AR-AMGEN-ARGSP2013059016

PATIENT
  Age: 68 Year
  Sex: Female

DRUGS (1)
  1. ENBREL [Suspect]
     Indication: RHEUMATOID ARTHRITIS
     Dosage: 50 MG, EVERY 10 DAYS
     Route: 065
     Dates: start: 20080114

REACTIONS (6)
  - Fall [Recovering/Resolving]
  - Limb injury [Recovered/Resolved]
  - Haematoma [Recovering/Resolving]
  - Pain [Recovering/Resolving]
  - Rib fracture [Recovered/Resolved]
  - Arthritis [Recovered/Resolved]
